FAERS Safety Report 11309047 (Version 4)
Quarter: 2015Q4

REPORT INFORMATION
  Report Type: Spontaneous
  Country: US (occurrence: US)
  Receive Date: 20150724
  Receipt Date: 20151211
  Transmission Date: 20160304
  Serious: Yes (Life-Threatening, Other)
  Sender: FDA-Public Use
  Company Number: US-MYLANLABS-2015M1023832

PATIENT

DRUGS (4)
  1. PREDNISONE. [Concomitant]
     Active Substance: PREDNISONE
     Dosage: UNK
  2. LEVOTHYROXINE SODIUM TABLETS, USP [Suspect]
     Active Substance: LEVOTHYROXINE SODIUM
     Indication: HYPOTHYROIDISM
     Dosage: 88 ?G, QD
     Route: 048
     Dates: start: 201008, end: 201502
  3. LEVOTHYROXINE SODIUM TABLETS, USP [Suspect]
     Active Substance: LEVOTHYROXINE SODIUM
     Indication: HYPOTHYROIDISM
     Dosage: 100 ?G, QD
     Route: 048
     Dates: start: 2010, end: 201501
  4. LEVOTHYROXINE SODIUM TABLETS, USP [Suspect]
     Active Substance: LEVOTHYROXINE SODIUM
     Dosage: 44 ?G, QD
     Route: 048
     Dates: end: 20151112

REACTIONS (14)
  - Mania [Unknown]
  - Weight decreased [Unknown]
  - Adrenal disorder [Unknown]
  - Heart rate decreased [Unknown]
  - Blood pressure decreased [Unknown]
  - Hypothyroidism [Not Recovered/Not Resolved]
  - Hot flush [Unknown]
  - Anger [Unknown]
  - Insomnia [Unknown]
  - Underdose [Recovered/Resolved]
  - Unevaluable event [Unknown]
  - Appetite disorder [Unknown]
  - Overdose [Recovered/Resolved]
  - Anxiety [Not Recovered/Not Resolved]

NARRATIVE: CASE EVENT DATE: 2015
